FAERS Safety Report 13769956 (Version 4)
Quarter: 2017Q3

REPORT INFORMATION
  Report Type: Spontaneous
  Country: FI (occurrence: FI)
  Receive Date: 20170719
  Receipt Date: 20170815
  Transmission Date: 20171127
  Serious: Yes (Death, Hospitalization, Other)
  Sender: FDA-Public Use
  Company Number: FI-ELI_LILLY_AND_COMPANY-FI201707005113

PATIENT
  Age: 77 Year
  Sex: Female

DRUGS (26)
  1. CYMBALTA [Suspect]
     Active Substance: DULOXETINE HYDROCHLORIDE
     Indication: PAIN
     Dosage: 30MG, UNKNOWN
     Route: 048
     Dates: start: 2016
  2. CYMBALTA [Suspect]
     Active Substance: DULOXETINE HYDROCHLORIDE
     Dosage: 30 MG, UNK
     Route: 048
     Dates: start: 20170131
  3. KETIPINOR [Suspect]
     Active Substance: QUETIAPINE FUMARATE
     Indication: PAIN
     Dosage: 25 MG, EACH EVENING
     Route: 048
     Dates: start: 20170303, end: 20170406
  4. TARGINIQ ER [Concomitant]
     Active Substance: NALOXONE HYDROCHLORIDE\OXYCODONE HYDROCHLORIDE
     Indication: PRODUCT USED FOR UNKNOWN INDICATION
     Dosage: 2 DF, DAILY
     Route: 048
     Dates: start: 20170331
  5. VENTOLINE                          /00139502/ [Concomitant]
     Indication: PRODUCT USED FOR UNKNOWN INDICATION
     Dosage: UNK UNK, UNKNOWN
     Route: 055
     Dates: start: 20161122
  6. SOMAC [Concomitant]
     Active Substance: PANTOPRAZOLE SODIUM
     Indication: PRODUCT USED FOR UNKNOWN INDICATION
     Dosage: 40 MG, DAILY
     Route: 048
     Dates: start: 20170207
  7. FLIXOTIDE [Concomitant]
     Active Substance: FLUTICASONE PROPIONATE
     Indication: PRODUCT USED FOR UNKNOWN INDICATION
     Dosage: 500 UG, DAILY
     Route: 055
     Dates: start: 20170306
  8. PARACETAMOL [Concomitant]
     Active Substance: ACETAMINOPHEN
     Indication: PRODUCT USED FOR UNKNOWN INDICATION
     Dosage: 2000 MG, DAILY
     Route: 065
  9. QUETIAPINE ACCORD [Suspect]
     Active Substance: QUETIAPINE
     Indication: PAIN
     Dosage: 25 MG, DAILY
     Route: 048
     Dates: start: 20170303, end: 20170406
  10. IMIGRAN RADIS [Concomitant]
     Indication: PRODUCT USED FOR UNKNOWN INDICATION
     Dosage: UNK, UNKNOWN
     Route: 065
     Dates: start: 20160511
  11. SIRDALUD [Concomitant]
     Active Substance: TIZANIDINE
     Indication: BACK PAIN
     Dosage: UNK, UNKNOWN
     Route: 065
  12. CYMBALTA [Suspect]
     Active Substance: DULOXETINE HYDROCHLORIDE
     Indication: DEPRESSION
     Dosage: 60 MG, UNKNOWN
     Route: 048
     Dates: end: 20170126
  13. PRAMIPEXOLE. [Concomitant]
     Active Substance: PRAMIPEXOLE
     Indication: PRODUCT USED FOR UNKNOWN INDICATION
     Dosage: 0.18 MG, DAILY
     Route: 048
     Dates: start: 20170223
  14. CYMBALTA [Suspect]
     Active Substance: DULOXETINE HYDROCHLORIDE
     Dosage: 60 UNK, UNK
     Route: 048
     Dates: start: 201703, end: 20170331
  15. VAGIFEM [Concomitant]
     Active Substance: ESTRADIOL
     Indication: PRODUCT USED FOR UNKNOWN INDICATION
     Dosage: 20 UG, WEEKLY (1/W)
     Route: 067
     Dates: start: 20160708
  16. PEGORION [Concomitant]
     Active Substance: POLYETHYLENE GLYCOL 4000
     Indication: PRODUCT USED FOR UNKNOWN INDICATION
     Dosage: 12 G, DAILY
     Route: 048
     Dates: start: 20160623
  17. CYMBALTA [Suspect]
     Active Substance: DULOXETINE HYDROCHLORIDE
     Dosage: UNK, UNKNOWN
     Route: 048
     Dates: end: 20170406
  18. ROSUVASTATIN. [Concomitant]
     Active Substance: ROSUVASTATIN
     Indication: PRODUCT USED FOR UNKNOWN INDICATION
     Dosage: 10 MG, DAILY
     Route: 048
     Dates: start: 20170303
  19. BISOPROLOL [Concomitant]
     Active Substance: BISOPROLOL
     Indication: PRODUCT USED FOR UNKNOWN INDICATION
     Dosage: UNK, UNKNOWN
     Route: 048
     Dates: start: 20170309
  20. OXYNORM [Concomitant]
     Active Substance: OXYCODONE HYDROCHLORIDE
     Indication: PRODUCT USED FOR UNKNOWN INDICATION
     Dosage: UNK, UNKNOWN
     Route: 042
     Dates: start: 20170329
  21. BETOLVEX                           /00056201/ [Concomitant]
     Active Substance: CYANOCOBALAMIN
     Indication: PRODUCT USED FOR UNKNOWN INDICATION
     Dosage: 1 MG, DAILY
     Route: 048
     Dates: start: 20170223
  22. AMLODIPIN                          /00972401/ [Concomitant]
     Active Substance: AMLODIPINE BESYLATE
     Indication: PRODUCT USED FOR UNKNOWN INDICATION
     Dosage: 5 MG, DAILY
     Route: 048
     Dates: start: 20170303
  23. ATARAX [Concomitant]
     Active Substance: HYDROXYZINE HYDROCHLORIDE
     Indication: PRODUCT USED FOR UNKNOWN INDICATION
     Dosage: 50 MG, DAILY
     Route: 048
     Dates: start: 20170331
  24. ZINACEF [Concomitant]
     Active Substance: CEFUROXIME SODIUM
     Indication: PRODUCT USED FOR UNKNOWN INDICATION
     Dosage: 4.5 G, DAILY
     Route: 065
     Dates: start: 20170330
  25. LOSARTAN KRKA                      /01121601/ [Concomitant]
     Indication: PRODUCT USED FOR UNKNOWN INDICATION
     Dosage: 50 MG, DAILY
     Route: 048
     Dates: start: 20150918
  26. SERENASE                           /00027401/ [Concomitant]
     Active Substance: HALOPERIDOL
     Indication: PRODUCT USED FOR UNKNOWN INDICATION
     Dosage: 2.5 MG, DAILY
     Route: 065
     Dates: start: 20170329

REACTIONS (39)
  - Malignant neoplasm progression [Unknown]
  - Depressed level of consciousness [Unknown]
  - Fall [Unknown]
  - Nightmare [Unknown]
  - General physical health deterioration [Unknown]
  - Papule [Unknown]
  - Acne [Unknown]
  - Drug ineffective [Unknown]
  - Neoplasm malignant [Unknown]
  - Blood pressure decreased [Unknown]
  - Haematocrit decreased [Unknown]
  - Blood pressure increased [Unknown]
  - Blood sodium decreased [Recovered/Resolved]
  - Respiratory syncytial virus infection [Unknown]
  - Limb injury [Unknown]
  - Vision blurred [Unknown]
  - Asthenia [Unknown]
  - Death [Fatal]
  - Blood creatinine increased [Unknown]
  - Serotonin syndrome [Unknown]
  - C-reactive protein increased [Unknown]
  - Discoloured vomit [Unknown]
  - Loss of control of legs [Unknown]
  - Fatigue [Unknown]
  - Rash [Unknown]
  - Visual impairment [Unknown]
  - Blood potassium decreased [Recovered/Resolved]
  - Dyspnoea [Unknown]
  - Red blood cell count decreased [Unknown]
  - Haemoglobin decreased [Unknown]
  - Feeling abnormal [Unknown]
  - Glomerular filtration rate decreased [Unknown]
  - Delusion [Unknown]
  - Hallucination, visual [Unknown]
  - Dysstasia [Unknown]
  - Muscle spasms [Unknown]
  - Emotional distress [Unknown]
  - Pain [Unknown]
  - Dizziness [Unknown]

NARRATIVE: CASE EVENT DATE: 20170211
